FAERS Safety Report 13324019 (Version 2)
Quarter: 2017Q2

REPORT INFORMATION
  Report Type: Report from Study
  Country: FR (occurrence: FR)
  Receive Date: 20170310
  Receipt Date: 20170609
  Transmission Date: 20170830
  Serious: Yes (Hospitalization, Other)
  Sender: FDA-Public Use
  Company Number: PHHO2016FR019211

PATIENT
  Age: 74 Year
  Sex: Female

DRUGS (5)
  1. ADVAGRAF [Suspect]
     Active Substance: TACROLIMUS
     Indication: RENAL TRANSPLANT
     Dosage: 12 MG, QD
     Route: 065
     Dates: start: 20160108
  2. NEORAL [Suspect]
     Active Substance: CYCLOSPORINE
     Indication: RENAL TRANSPLANT
     Dosage: 50 MG, BID
     Route: 048
     Dates: start: 20151031, end: 20160108
  3. ERL 080A [Suspect]
     Active Substance: MYCOPHENOLIC ACID
     Indication: RENAL TRANSPLANT
     Dosage: 720 MG, BID
     Route: 048
     Dates: start: 20160108, end: 20160322
  4. CERTICAN [Suspect]
     Active Substance: EVEROLIMUS
     Dosage: 0.50 MG, BID
     Route: 048
     Dates: start: 20151117, end: 20160108
  5. CERTICAN [Suspect]
     Active Substance: EVEROLIMUS
     Indication: RENAL TRANSPLANT
     Dosage: 0.75 MG, BID
     Route: 048
     Dates: start: 20151104, end: 20151117

REACTIONS (2)
  - Decreased appetite [Recovered/Resolved]
  - Cytomegalovirus syndrome [Recovered/Resolved]

NARRATIVE: CASE EVENT DATE: 20160302
